FAERS Safety Report 8516843-9 (Version None)
Quarter: 2012Q3

REPORT INFORMATION
  Report Type: 
  Country: None (occurrence: None)
  Receive Date: 20120718
  Receipt Date: 20120713
  Transmission Date: 20120928
  Serious: Yes (Death, Life-Threatening, Hospitalization, Other)
  Sender: FDA-Public Use
  Company Number: KR-MILLENNIUM PHARMACEUTICALS, INC.-2008-00862

PATIENT

DRUGS (5)
  1. DOXORUBICIN HCL [Suspect]
     Indication: T-CELL LYMPHOMA
     Dosage: 50.00 MG/M2, UNK
     Route: 042
     Dates: start: 20080124, end: 20080222
  2. CYCLOPHOSPHAMIDE [Suspect]
     Indication: T-CELL LYMPHOMA
     Dosage: 750.00 MG/M2, UNK
     Route: 042
     Dates: start: 20080124, end: 20080222
  3. VELCADE [Suspect]
     Indication: T-CELL LYMPHOMA
     Dosage: 1.60 MG/M2, UNK
     Route: 042
     Dates: start: 20080124, end: 20080222
  4. PREDNISONE [Suspect]
     Indication: T-CELL LYMPHOMA
     Dosage: 100.00 MG, UNK
     Route: 042
     Dates: start: 20080124, end: 20080226
  5. VINCRISTINE [Suspect]
     Indication: T-CELL LYMPHOMA
     Dosage: 1.40 MG/M2, UNK
     Route: 042
     Dates: start: 20080124, end: 20080222

REACTIONS (4)
  - DISEASE PROGRESSION [None]
  - HEPATIC FUNCTION ABNORMAL [None]
  - TRANSAMINASES INCREASED [None]
  - BLOOD BILIRUBIN INCREASED [None]
